FAERS Safety Report 14651109 (Version 2)
Quarter: 2018Q2

REPORT INFORMATION
  Report Type: Report from Study
  Country: DE (occurrence: DE)
  Receive Date: 20180316
  Receipt Date: 20180516
  Transmission Date: 20180711
  Serious: Yes (Hospitalization)
  Sender: FDA-Public Use
  Company Number: DE-PFIZER INC-2018106007

PATIENT
  Age: 67 Year
  Sex: Male
  Weight: 87 kg

DRUGS (14)
  1. MCP [Concomitant]
     Active Substance: METOCLOPRAMIDE HYDROCHLORIDE
     Dosage: 10 MG, 1X/DAY
     Route: 048
     Dates: start: 2016
  2. LOPERAMID [Concomitant]
     Active Substance: LOPERAMIDE
     Indication: DIARRHOEA
     Dosage: 2 MG, UNK
     Route: 048
     Dates: start: 20160622, end: 201606
  3. OXALIPLATIN. [Suspect]
     Active Substance: OXALIPLATIN
     Indication: COLORECTAL CANCER
     Dosage: 104 MG, WEEKLY
     Route: 042
     Dates: start: 20160323, end: 20160615
  4. OMEPRAZOLE. [Concomitant]
     Active Substance: OMEPRAZOLE
     Dosage: 20 MG, 1X/DAY
     Route: 048
     Dates: start: 20160101
  5. MCP [Concomitant]
     Active Substance: METOCLOPRAMIDE HYDROCHLORIDE
     Dosage: 30 MG, 1X/DAY
     Route: 048
     Dates: start: 20160101
  6. OXALIPLATIN. [Suspect]
     Active Substance: OXALIPLATIN
     Dosage: 104 MG, WEEKLY
     Route: 042
     Dates: end: 20160706
  7. FOLINIC ACID [Concomitant]
     Active Substance: LEUCOVORIN
     Dosage: 1040 MG, WEEKLY
     Route: 042
     Dates: start: 20160615, end: 20160615
  8. FOLINIC ACID [Concomitant]
     Active Substance: LEUCOVORIN
     Dosage: 1040 MG, WEEKLY
     Route: 042
     Dates: start: 20160706, end: 20160706
  9. DEXAMETHASONE. [Concomitant]
     Active Substance: DEXAMETHASONE
     Dosage: 8 MG, UNK
     Route: 048
     Dates: start: 20160317
  10. AVASTIN [Suspect]
     Active Substance: BEVACIZUMAB
     Indication: COLORECTAL CANCER METASTATIC
     Dosage: 652.5 MG, EVERY 3 WEEKS
     Route: 042
     Dates: start: 20160420, end: 20160622
  11. FLUOROURACIL. [Suspect]
     Active Substance: FLUOROURACIL
     Dosage: 4150 MG, WEEKLY
     Route: 042
     Dates: end: 20160706
  12. FOLINIC ACID [Concomitant]
     Active Substance: LEUCOVORIN
     Indication: COLORECTAL CANCER
     Dosage: 1040 MG, WEEKLY
     Route: 042
     Dates: start: 20160323, end: 20160706
  13. FLUOROURACIL. [Suspect]
     Active Substance: FLUOROURACIL
     Indication: COLORECTAL CANCER
     Dosage: 4150 MG, WEEKLY
     Route: 042
     Dates: start: 20160323, end: 20160615
  14. PANTOPRAZOL [Concomitant]
     Active Substance: PANTOPRAZOLE SODIUM
     Dosage: 40 MG, UNK
     Route: 048
     Dates: start: 20170601

REACTIONS (2)
  - Proteinuria [Unknown]
  - Atrial fibrillation [Recovered/Resolved]

NARRATIVE: CASE EVENT DATE: 20160622
